FAERS Safety Report 6384575-1 (Version None)
Quarter: 2009Q3

REPORT INFORMATION
  Report Type: 
  Country: None (occurrence: None)
  Receive Date: 20090928
  Receipt Date: 20090924
  Transmission Date: 20100115
  Serious: Yes (Other)
  Sender: FDA-Public Use
  Company Number: GXKR2009DE10001

PATIENT
  Age: 82 Year
  Sex: Female
  Weight: 70 kg

DRUGS (4)
  1. ALLOPURINOL [Suspect]
     Indication: HYPERURICAEMIA
     Dosage: 100 MG, QD, ORAL
     Route: 048
     Dates: start: 20050101, end: 20080101
  2. RAMIPRIL PLUS (HYDROCHLOROTHIAZIDE, RAMIPRIL) [Concomitant]
  3. VALPROATE SODIUM [Concomitant]
  4. RASILEZ (ALISKIREN) [Concomitant]

REACTIONS (5)
  - ALOPECIA [None]
  - ARTHRALGIA [None]
  - ECZEMA [None]
  - MACULAR DEGENERATION [None]
  - RETINAL DISORDER [None]
